FAERS Safety Report 14332747 (Version 1)
Quarter: 2017Q4

REPORT INFORMATION
  Report Type: Spontaneous
  Country: US (occurrence: US)
  Receive Date: 20171228
  Receipt Date: 20171228
  Transmission Date: 20180321
  Serious: No
  Sender: FDA-Public Use
  Company Number: US-BAYER-2017-246255

PATIENT
  Age: 41 Year
  Sex: Female

DRUGS (1)
  1. ACARBOSE. [Suspect]
     Active Substance: ACARBOSE
     Indication: HYPERINSULINAEMIC HYPOGLYCAEMIA

REACTIONS (1)
  - Drug ineffective for unapproved indication [None]
